FAERS Safety Report 19548544 (Version 2)
Quarter: 2021Q4

REPORT INFORMATION
  Report Type: Report from Study
  Country: US (occurrence: US)
  Receive Date: 20210714
  Receipt Date: 20211019
  Transmission Date: 20220303
  Serious: No
  Sender: FDA-Public Use
  Company Number: US-BIOVITRUM-2021US6752

PATIENT
  Sex: Female

DRUGS (1)
  1. DOPTELET [Suspect]
     Active Substance: AVATROMBOPAG MALEATE
     Indication: Thrombocytopenia
     Route: 048
     Dates: start: 20210319

REACTIONS (5)
  - Illness [Unknown]
  - Nasopharyngitis [Unknown]
  - Nausea [Recovering/Resolving]
  - Migraine [Recovering/Resolving]
  - Platelet count decreased [Unknown]
